FAERS Safety Report 9363628 (Version 4)
Quarter: 2014Q1

REPORT INFORMATION
  Report Type: Spontaneous
  Country: BR (occurrence: BR)
  Receive Date: 20130624
  Receipt Date: 20140106
  Transmission Date: 20141002
  Serious: Yes (Hospitalization)
  Sender: FDA-Public Use
  Company Number: BR-ROCHE-1237205

PATIENT
  Age: 27 Year
  Sex: Female
  Weight: 67 kg

DRUGS (6)
  1. RIVOTRIL [Suspect]
     Indication: PANIC ATTACK
     Dosage: AT NIGHT
     Route: 065
     Dates: start: 2009, end: 201305
  2. RIVOTRIL [Suspect]
     Indication: ANXIETY
  3. BUPROPION [Concomitant]
     Indication: PANIC ATTACK
     Route: 065
     Dates: start: 2009, end: 201305
  4. BUPROPION [Concomitant]
     Indication: ANXIETY
  5. SERTRALINE [Concomitant]
     Indication: ANXIETY
     Route: 065
     Dates: start: 2009
  6. SERTRALINE [Concomitant]
     Indication: PANIC ATTACK

REACTIONS (14)
  - Leukopenia [Not Recovered/Not Resolved]
  - Gastrointestinal disorder [Recovered/Resolved]
  - Intestinal polyp [Recovered/Resolved]
  - Irritability [Recovered/Resolved]
  - Feeling of despair [Recovered/Resolved]
  - Somnolence [Recovered/Resolved]
  - Memory impairment [Recovered/Resolved]
  - Nausea [Recovered/Resolved]
  - Coeliac disease [Recovering/Resolving]
  - White blood cell count increased [Unknown]
  - Hypothyroidism [Recovered/Resolved]
  - Dizziness [Unknown]
  - Sluggishness [Unknown]
  - Irritable bowel syndrome [Recovered/Resolved]
